FAERS Safety Report 7912107-2 (Version None)
Quarter: 2011Q4

REPORT INFORMATION
  Report Type: 
  Country: None (occurrence: None)
  Receive Date: 20111114
  Receipt Date: 20111101
  Transmission Date: 20120403
  Serious: Yes (Other)
  Sender: FDA-Public Use
  Company Number: JP-AMGEN-JPNSP2011053130

PATIENT
  Age: 41 Year
  Sex: Female

DRUGS (10)
  1. ROMIPLATE [Suspect]
     Route: 058
     Dates: start: 20110812, end: 20110812
  2. ROMIPLATE [Suspect]
     Route: 058
     Dates: start: 20110825, end: 20110825
  3. INCREMIN [Concomitant]
     Route: 048
     Dates: start: 20110519, end: 20110927
  4. ROMIPLATE [Suspect]
     Route: 058
     Dates: start: 20110901, end: 20110901
  5. ROMIPLATE [Suspect]
     Indication: IDIOPATHIC THROMBOCYTOPENIC PURPURA
     Dosage: 250 MUG, QWK
     Route: 058
     Dates: start: 20110812, end: 20110909
  6. ROMIPLATE [Suspect]
     Route: 058
     Dates: start: 20110817, end: 20110817
  7. ROMIPLATE [Suspect]
     Route: 058
     Dates: start: 20110909, end: 20110909
  8. OMEPRAZOLE [Concomitant]
     Route: 048
     Dates: start: 20070713, end: 20110927
  9. LOXONIN [Concomitant]
     Route: 048
     Dates: start: 20110825, end: 20110829
  10. MEIACT [Concomitant]
     Dosage: 100 MG, QD
     Route: 048
     Dates: start: 20110825, end: 20110829

REACTIONS (1)
  - ANAEMIA HAEMOLYTIC AUTOIMMUNE [None]
